FAERS Safety Report 4560852-1 (Version None)
Quarter: 2005Q1

REPORT INFORMATION
  Report Type: 
  Country: None (occurrence: None)
  Receive Date: 20050126
  Receipt Date: 20050119
  Transmission Date: 20050727
  Serious: Yes (Death)
  Sender: FDA-Public Use
  Company Number: JP-BRISTOL-MYERS SQUIBB COMPANY-12831863

PATIENT
  Age: 64 Year
  Sex: Female

DRUGS (3)
  1. BRIPLATIN [Suspect]
     Indication: GASTRIC CANCER
     Route: 042
     Dates: start: 20041227, end: 20041227
  2. RANDA [Suspect]
     Indication: GASTRIC CANCER
     Route: 042
     Dates: start: 20041227, end: 20041227
  3. TS-1 [Suspect]
     Indication: GASTRIC CANCER
     Route: 048
     Dates: start: 20041216, end: 20050107

REACTIONS (1)
  - PULMONARY EMBOLISM [None]
